FAERS Safety Report 24062496 (Version 2)
Quarter: 2024Q3

REPORT INFORMATION
  Report Type: Spontaneous
  Country: US (occurrence: US)
  Receive Date: 20240708
  Receipt Date: 20240716
  Transmission Date: 20241017
  Serious: No
  Sender: MYLAN
  Company Number: US-MYLANLABS-2024M1058488

PATIENT
  Sex: Male
  Weight: 78.02 kg

DRUGS (1)
  1. WIXELA INHUB [Suspect]
     Active Substance: FLUTICASONE PROPIONATE\SALMETEROL XINAFOATE
     Indication: Product used for unknown indication
     Dosage: 250/50 MICROGRAM
     Route: 055
     Dates: start: 202406, end: 202407

REACTIONS (6)
  - Oropharyngeal pain [Recovering/Resolving]
  - Drug ineffective [Unknown]
  - Weight increased [Recovering/Resolving]
  - Dysphonia [Recovering/Resolving]
  - Throat irritation [Recovering/Resolving]
  - Headache [Recovering/Resolving]
